FAERS Safety Report 25007917 (Version 2)
Quarter: 2025Q1

REPORT INFORMATION
  Report Type: Spontaneous
  Country: IT (occurrence: IT)
  Receive Date: 20250225
  Receipt Date: 20250302
  Transmission Date: 20250409
  Serious: Yes (Life-Threatening, Hospitalization, Other)
  Sender: AUROBINDO
  Company Number: IT-MINISAL02-1024012

PATIENT
  Age: 36 Year
  Sex: Male

DRUGS (8)
  1. QUETIAPINE [Suspect]
     Active Substance: QUETIAPINE
     Indication: Product used for unknown indication
     Route: 048
     Dates: start: 20240812, end: 20240812
  2. PERINDOPRIL [Suspect]
     Active Substance: PERINDOPRIL
     Indication: Product use in unapproved indication
     Dosage: 16 MILLIGRAM(PERINDOPRIL 4MG 4 COMPRESSE)
     Route: 048
     Dates: start: 20240812, end: 20240812
  3. ABILIFY [Suspect]
     Active Substance: ARIPIPRAZOLE
     Indication: Product use in unapproved indication
     Dosage: 40 MILLIGRAM(ABILIFY 10 MG 4 COMPRESSE)
     Route: 048
     Dates: start: 20240812, end: 20240812
  4. VALPROATE SODIUM [Suspect]
     Active Substance: VALPROATE SODIUM
     Indication: Product use in unapproved indication
     Dosage: 1500 MILLIGRAM(DEPAKIN 500MG 3 COMPRESSE)
     Route: 048
     Dates: start: 20240812, end: 20240812
  5. LAMICTAL [Suspect]
     Active Substance: LAMOTRIGINE
     Indication: Product use in unapproved indication
     Dosage: 200 MILLIGRAM(LAMIKTAL 50 MG 4 COMPRESSE)
     Route: 048
     Dates: start: 20240812, end: 20240812
  6. LASIX [Suspect]
     Active Substance: FUROSEMIDE
     Indication: Product use in unapproved indication
     Dosage: 100 MILLIGRAM(LASIX 25MG 4 COMPRESSE)
     Route: 048
     Dates: start: 20240812, end: 20240812
  7. RIVOTRIL [Suspect]
     Active Substance: CLONAZEPAM
     Indication: Product use in unapproved indication
     Route: 048
     Dates: start: 20240812, end: 20240812
  8. VENLAFAXINE HYDROCHLORIDE [Suspect]
     Active Substance: VENLAFAXINE HYDROCHLORIDE
     Indication: Product use in unapproved indication
     Dosage: 300 MILLIGRAM(ZARILIS 75MG 4 COMPRESSE)
     Route: 048
     Dates: start: 20240812, end: 20240812

REACTIONS (3)
  - Intentional self-injury [Recovered/Resolved]
  - Drug abuse [Recovered/Resolved]
  - Sopor [Recovered/Resolved]

NARRATIVE: CASE EVENT DATE: 20240812
